FAERS Safety Report 7584544-X (Version None)
Quarter: 2011Q2

REPORT INFORMATION
  Report Type: 
  Country: None (occurrence: None)
  Receive Date: 20110630
  Receipt Date: 20110629
  Transmission Date: 20111010
  Serious: Yes (Life-Threatening, Hospitalization, Other)
  Sender: FDA-Public Use
  Company Number: US-PFIZER INC-2010004104

PATIENT
  Sex: Female
  Weight: 70.295 kg

DRUGS (6)
  1. CELEBREX [Suspect]
     Indication: NECK PAIN
  2. CHANTIX [Suspect]
     Indication: SMOKING CESSATION THERAPY
     Dosage: UNK
  3. CELEBREX [Suspect]
     Indication: BACK PAIN
     Dosage: 200 MG DAILY
     Route: 048
     Dates: start: 20000301, end: 20021201
  4. OXYCONTIN [Concomitant]
     Indication: NECK PAIN
     Dosage: UNK
     Route: 048
     Dates: start: 20000601
  5. XANAX [Suspect]
     Indication: SLEEP DISORDER
     Dosage: 6 MG, UNK
  6. OXYCONTIN [Concomitant]
     Indication: BACK PAIN
     Dosage: 80 MG, UNK
     Route: 048
     Dates: start: 20000601

REACTIONS (6)
  - THROMBOSIS [None]
  - COAGULOPATHY [None]
  - DISEASE PROGRESSION [None]
  - PULMONARY FIBROSIS [None]
  - DEPRESSION [None]
  - PULMONARY EMBOLISM [None]
